FAERS Safety Report 7133726-X (Version None)
Quarter: 2010Q4

REPORT INFORMATION
  Report Type: 
  Country: None (occurrence: None)
  Receive Date: 20101203
  Receipt Date: 20101122
  Transmission Date: 20110411
  Serious: Yes (Hospitalization)
  Sender: FDA-Public Use
  Company Number: DE-BIOGENIDEC-2010BI036512

PATIENT
  Age: 73 Year
  Sex: Male

DRUGS (5)
  1. TYSABRI [Suspect]
     Indication: RELAPSING-REMITTING MULTIPLE SCLEROSIS
     Route: 042
     Dates: start: 20080415
  2. CARBAMAZEPINE [Concomitant]
     Indication: TRIGEMINAL NEURALGIA
  3. DEXAMETHASONE [Concomitant]
     Indication: PRODUCT USED FOR UNKNOWN INDICATION
     Dates: end: 20101021
  4. DEXAMETHASONE [Concomitant]
     Dates: end: 20101025
  5. DEXAMETHASONE [Concomitant]

REACTIONS (11)
  - BRONCHITIS [None]
  - CONTUSION [None]
  - DEMENTIA [None]
  - FALL [None]
  - HEPATIC CYST [None]
  - HYPERCHOLESTEROLAEMIA [None]
  - IRON DEFICIENCY [None]
  - NON-HODGKIN'S LYMPHOMA STAGE III [None]
  - SECONDARY HYPOTHYROIDISM [None]
  - SLEEP DISORDER [None]
  - WEIGHT DECREASED [None]
